FAERS Safety Report 4925049-1 (Version None)
Quarter: 2006Q1

REPORT INFORMATION
  Report Type: 
  Country: None (occurrence: None)
  Receive Date: 20060222
  Receipt Date: 20060217
  Transmission Date: 20060701
  Serious: Yes (Death)
  Sender: FDA-Public Use
  Company Number: 2006US-01468

PATIENT
  Age: 23 Year
  Sex: Male
  Weight: 81.6 kg

DRUGS (1)
  1. OPIUM TINCTURE (OPIUM TINCTURE) [Suspect]
     Indication: CROHN'S DISEASE
     Dosage: 4 GTT, Q4H, ORAL
     Route: 048
     Dates: end: 20051203

REACTIONS (9)
  - ARTHRALGIA [None]
  - DRUG TOXICITY [None]
  - MALAISE [None]
  - NAUSEA [None]
  - OVERDOSE [None]
  - PAIN IN EXTREMITY [None]
  - POISONING [None]
  - SINUSITIS [None]
  - VOMITING [None]
